FAERS Safety Report 16024660 (Version 1)
Quarter: 2019Q1

REPORT INFORMATION
  Report Type: Spontaneous
  Country: DE (occurrence: DE)
  Receive Date: 20190301
  Receipt Date: 20190301
  Transmission Date: 20190418
  Serious: Yes (Other)
  Sender: FDA-Public Use
  Company Number: DE-MYLANLABS-2019M1018339

PATIENT
  Age: 90 Year
  Sex: Female

DRUGS (5)
  1. TORASEMID HEXAL [Suspect]
     Active Substance: TORSEMIDE
     Indication: PRODUCT USED FOR UNKNOWN INDICATION
     Dosage: 40 MILLIGRAM, QD  (20 MG, BID (1-1-0)
     Route: 065
  2. TORASEMIDE [Suspect]
     Active Substance: TORSEMIDE
     Dosage: 400 MILLIGRAM, QD
     Route: 065
     Dates: start: 20180712, end: 20180731
  3. MARCUMAR [Concomitant]
     Active Substance: PHENPROCOUMON
     Indication: PRODUCT USED FOR UNKNOWN INDICATION
     Dosage: UNK
     Route: 065
  4. GINKYO [Concomitant]
     Indication: PRODUCT USED FOR UNKNOWN INDICATION
     Dosage: UNK
     Route: 065
  5. TORASEMIDE [Suspect]
     Active Substance: TORSEMIDE
     Indication: PRODUCT USED FOR UNKNOWN INDICATION
     Dosage: 50 MG, UNK
     Route: 065

REACTIONS (6)
  - Weight decreased [Unknown]
  - Renal failure [Unknown]
  - Fall [Unknown]
  - Fatigue [Unknown]
  - Product prescribing issue [Unknown]
  - Confusional state [Unknown]

NARRATIVE: CASE EVENT DATE: 2018
